FAERS Safety Report 12932544 (Version 1)
Quarter: 2016Q4

REPORT INFORMATION
  Report Type: Spontaneous
  Country: LB (occurrence: KP)
  Receive Date: 20161111
  Receipt Date: 20161111
  Transmission Date: 20170207
  Serious: Yes (Other)
  Sender: FDA-Public Use
  Company Number: LB-GLENMARK PHARMACEUTICALS INC, USA.-2016GMK024905

PATIENT
  Age: 15 Year
  Sex: Male

DRUGS (4)
  1. NAPROXEN. [Suspect]
     Active Substance: NAPROXEN
     Indication: ANKYLOSING SPONDYLITIS
     Dosage: UNK
     Route: 065
  2. METHOTREXATE. [Suspect]
     Active Substance: METHOTREXATE
     Indication: ANKYLOSING SPONDYLITIS
     Dosage: UNK
     Route: 065
  3. NAPROXEN. [Suspect]
     Active Substance: NAPROXEN
     Indication: SACROILIITIS
  4. METHOTREXATE. [Suspect]
     Active Substance: METHOTREXATE
     Indication: SACROILIITIS

REACTIONS (1)
  - Condition aggravated [Recovering/Resolving]
